FAERS Safety Report 13632017 (Version 1)
Quarter: 2017Q2

REPORT INFORMATION
  Report Type: Spontaneous
  Country: HR (occurrence: HR)
  Receive Date: 20170608
  Receipt Date: 20170608
  Transmission Date: 20170830
  Serious: Yes (Other)
  Sender: FDA-Public Use
  Company Number: HR-GILEAD-2017-0276291

PATIENT
  Sex: Male

DRUGS (1)
  1. RANOLAZINE. [Suspect]
     Active Substance: RANOLAZINE
     Indication: CARDIAC DISORDER
     Dosage: UNK
     Route: 048

REACTIONS (4)
  - Gait disturbance [Unknown]
  - Dizziness [Unknown]
  - Disturbance in attention [Unknown]
  - Intellectual disability [Unknown]

NARRATIVE: CASE EVENT DATE: 2016
